FAERS Safety Report 9260292 (Version 3)
Quarter: 2013Q4

REPORT INFORMATION
  Report Type: Spontaneous
  Country: GB (occurrence: GB)
  Receive Date: 20130429
  Receipt Date: 20131014
  Transmission Date: 20140711
  Serious: Yes (Life-Threatening, Hospitalization, Disabling)
  Sender: FDA-Public Use
  Company Number: PHFR2013GB002340

PATIENT
  Age: 51 Year
  Sex: Male
  Weight: 100 kg

DRUGS (8)
  1. CLOZARIL [Suspect]
     Indication: SCHIZOPHRENIA
     Dosage: 200 MG IN THE MORNING AND 400 MG AT NIGHT.
     Route: 048
     Dates: start: 20010714
  2. CLOZARIL [Suspect]
     Dosage: 200 MG IN THE MORNING AND 400 MG AT NIGHT.
     Dates: start: 201207
  3. OMEPRAZOLE [Concomitant]
     Dosage: UNK
  4. RAMIPRIL [Concomitant]
     Dosage: UNK
  5. AMISULPRIDE [Concomitant]
     Dosage: UNK
  6. METFORMIN [Concomitant]
     Dosage: UNK
  7. MOVICOL [Concomitant]
     Dosage: 1 DF, TID ONE THREE TIMES DAILY, WHEN REQUIRED.
  8. KWELLS [Concomitant]
     Dosage: 1 DF, BID

REACTIONS (11)
  - Renal failure acute [Unknown]
  - Lactic acidosis [Unknown]
  - Sepsis [Unknown]
  - Oral candidiasis [Unknown]
  - Intestinal obstruction [Recovering/Resolving]
  - Pancreatitis [Recovering/Resolving]
  - Constipation [Recovering/Resolving]
  - General physical health deterioration [Unknown]
  - Malaise [Unknown]
  - White blood cell count increased [Not Recovered/Not Resolved]
  - Neutrophil count increased [Not Recovered/Not Resolved]
